FAERS Safety Report 8426306-7 (Version None)
Quarter: 2012Q2

REPORT INFORMATION
  Report Type: 
  Country: None (occurrence: None)
  Receive Date: 20120611
  Receipt Date: 20120601
  Transmission Date: 20120825
  Serious: Yes (Other)
  Sender: FDA-Public Use
  Company Number: FR-SANOFI-AVENTIS-2012SA039439

PATIENT
  Age: 49 Year
  Sex: Female

DRUGS (1)
  1. TAXOTERE [Suspect]
     Indication: BREAST OPERATION
     Route: 042
     Dates: start: 20120525

REACTIONS (8)
  - SKIN BURNING SENSATION [None]
  - PARAESTHESIA [None]
  - NEUROPATHY PERIPHERAL [None]
  - ORAL CANDIDIASIS [None]
  - LIP OEDEMA [None]
  - VISUAL IMPAIRMENT [None]
  - ERYTHEMA [None]
  - ARTHRALGIA [None]
